FAERS Safety Report 6243446-1 (Version None)
Quarter: 2009Q2

REPORT INFORMATION
  Report Type: 
  Country: None (occurrence: None)
  Receive Date: 20090618
  Receipt Date: 20090323
  Transmission Date: 20091009
  Serious: Yes (Hospitalization)
  Sender: FDA-Public Use
  Company Number: CIP09000741

PATIENT
  Age: 75 Year
  Sex: Female

DRUGS (14)
  1. ACTONEL [Suspect]
     Indication: OSTEOPENIA
     Dosage: 150 MG ONCE MONTHLY, ORAL
     Route: 048
     Dates: start: 20090314
  2. COUMADIN [Concomitant]
  3. METOPROLOL SUCCINATE [Concomitant]
  4. COZAAR [Concomitant]
  5. LIALDA [Concomitant]
  6. NEXIUM /0149302/ (ESOMEPRAZOLE MAGNESIUM) [Concomitant]
  7. BENADRYL [Concomitant]
  8. ALLEGRA /01314201/ (FEXOFENADINE) [Concomitant]
  9. AZMACORT [Concomitant]
  10. RESTASIS (CICLOSPORIN) [Concomitant]
  11. GLUCOSAMIE + CHONDROITIN (CHONDROITIN SULFATE, GLUCOSAMINE) [Concomitant]
  12. VITAMIN C /00008001/ (ASCORBIC ACID) [Concomitant]
  13. CENTRUM SILVER /01292501/ (ASCORBIC ACID, MINERALS NOS, RETINOL, TOCOP [Concomitant]
  14. ERGOCALCIFEROL [Concomitant]

REACTIONS (8)
  - BACK PAIN [None]
  - DIARRHOEA [None]
  - MUSCULOSKELETAL DISORDER [None]
  - MUSCULOSKELETAL STIFFNESS [None]
  - NAUSEA [None]
  - NECK PAIN [None]
  - PAIN IN EXTREMITY [None]
  - VOMITING [None]
